FAERS Safety Report 5135060-6 (Version None)
Quarter: 2006Q4

REPORT INFORMATION
  Report Type: 
  Country: None (occurrence: None)
  Receive Date: 20060831
  Receipt Date: 20060711
  Transmission Date: 20070319
  Serious: No
  Sender: FDA-Public Use
  Company Number: 2006-BP-07954BP

PATIENT
  Age: 54 Year
  Sex: Female

DRUGS (5)
  1. SPIRIVA [Suspect]
     Indication: CHRONIC OBSTRUCTIVE PULMONARY DISEASE
     Dosage: 18 MCG (18 MCG),IH
     Route: 055
     Dates: start: 20060614
  2. CLONAZEPAM [Concomitant]
  3. TESSALON [Concomitant]
  4. ZOLOFT [Concomitant]
  5. TYLENOL [Concomitant]

REACTIONS (4)
  - DIZZINESS [None]
  - DYSPEPSIA [None]
  - HEADACHE [None]
  - VISION BLURRED [None]
